FAERS Safety Report 10289091 (Version 7)
Quarter: 2016Q4

REPORT INFORMATION
  Report Type: Report from Study
  Country: CA (occurrence: CA)
  Receive Date: 20140710
  Receipt Date: 20161129
  Transmission Date: 20170206
  Serious: Yes (Other)
  Sender: FDA-Public Use
  Company Number: CA-ROCHE-1432526

PATIENT
  Age: 53 Year
  Sex: Female

DRUGS (20)
  1. RITUXAN [Suspect]
     Active Substance: RITUXIMAB
     Indication: RHEUMATOID ARTHRITIS
     Dosage: FREQUENCY: DAY 1 AND DAY 15
     Route: 042
     Dates: start: 20130501
  2. GELNIQUE [Concomitant]
     Active Substance: OXYBUTYNIN
  3. PROLIA [Concomitant]
     Active Substance: DENOSUMAB
     Indication: OSTEOARTHRITIS
     Route: 058
  4. RITUXAN [Suspect]
     Active Substance: RITUXIMAB
     Dosage: LAST DOSE: 24/SEP/2015
     Route: 042
     Dates: start: 20150910
  5. NIFEDIPINE. [Concomitant]
     Active Substance: NIFEDIPINE
  6. RAMIPRIL. [Concomitant]
     Active Substance: RAMIPRIL
     Indication: BLOOD PRESSURE MEASUREMENT
  7. XYLOCAINE [Suspect]
     Active Substance: LIDOCAINE HYDROCHLORIDE
     Indication: PRODUCT USED FOR UNKNOWN INDICATION
     Route: 065
     Dates: start: 20140320
  8. SALAGEN [Concomitant]
     Active Substance: PILOCARPINE HYDROCHLORIDE
  9. MSM [Concomitant]
     Active Substance: DIMETHYL SULFONE
  10. REACTINE (CANADA) [Concomitant]
     Active Substance: CETIRIZINE HYDROCHLORIDE
     Dosage: 0.5-1 TABLET EVERY DAY AT BED TIME FOR 90 DAYS
     Route: 065
  11. CIPROFLOXACIN. [Concomitant]
     Active Substance: CIPROFLOXACIN
     Route: 048
  12. DEPO-MEDROL [Suspect]
     Active Substance: METHYLPREDNISOLONE ACETATE
     Indication: PRODUCT USED FOR UNKNOWN INDICATION
     Route: 065
     Dates: start: 20140320
  13. MYRBETRIQ [Concomitant]
     Active Substance: MIRABEGRON
  14. OMNARIS [Concomitant]
     Active Substance: CICLESONIDE
     Dosage: 2 SPRAY(S) ONCE DAILY FOR 90 DAYS
     Route: 065
  15. ACETAMINOPHEN. [Concomitant]
     Active Substance: ACETAMINOPHEN
     Indication: PREMEDICATION
     Route: 048
     Dates: start: 20130501
  16. REACTINE (CANADA) [Concomitant]
     Active Substance: CETIRIZINE HYDROCHLORIDE
     Indication: PREMEDICATION
     Route: 048
     Dates: start: 20130501
  17. PREDNISONE. [Concomitant]
     Active Substance: PREDNISONE
     Dosage: 9.5 TABLETS ONCE DAILY X 1 MONTH THEN 9 TABLETS ONCE DAILY FOR MONTH THEN 8.5 TABLETS ONCE DAILY FOR
     Route: 048
  18. METHYLPREDNISOLONE. [Concomitant]
     Active Substance: METHYLPREDNISOLONE
     Indication: PREMEDICATION
     Route: 042
     Dates: start: 20130501
  19. RABEPRAZOLE [Concomitant]
     Active Substance: RABEPRAZOLE
  20. SINGULAIR JUNIOR [Concomitant]
     Route: 048

REACTIONS (19)
  - Open fracture [Unknown]
  - Inflammatory pain [Recovering/Resolving]
  - Musculoskeletal disorder [Unknown]
  - Poor quality sleep [Unknown]
  - Osteoarthritis [Unknown]
  - Joint swelling [Recovering/Resolving]
  - Osteopenia [Unknown]
  - Joint swelling [Unknown]
  - Arthralgia [Unknown]
  - Blood cholesterol increased [Not Recovered/Not Resolved]
  - Fatigue [Unknown]
  - Joint instability [Recovering/Resolving]
  - Drug effect decreased [Unknown]
  - Pain [Unknown]
  - Synovitis [Unknown]
  - Arthropathy [Unknown]
  - Fall [Unknown]
  - Diabetes mellitus [Not Recovered/Not Resolved]
  - Urinary incontinence [Unknown]

NARRATIVE: CASE EVENT DATE: 201308
